FAERS Safety Report 4364153-6 (Version None)
Quarter: 2004Q2

REPORT INFORMATION
  Report Type: 
  Country: None (occurrence: None)
  Receive Date: 20040519
  Receipt Date: 20040504
  Transmission Date: 20050107
  Serious: Yes (Death, Life-Threatening, Hospitalization)
  Sender: FDA-Public Use
  Company Number: 2003SP000027

PATIENT
  Age: 82 Year
  Sex: Male

DRUGS (10)
  1. XOPENEX [Suspect]
     Indication: ASTHMA
     Dosage: 1.25 MG; UNKNOWN; INHALATION
     Route: 055
     Dates: start: 20031006, end: 20031009
  2. XOPENEX [Suspect]
     Indication: CHRONIC OBSTRUCTIVE AIRWAYS DISEASE
     Dosage: 1.25 MG; UNKNOWN; INHALATION
     Route: 055
     Dates: start: 20031006, end: 20031009
  3. DIGOXIN [Concomitant]
  4. PREDNISONE [Concomitant]
  5. ASPIRIN [Concomitant]
  6. ASPIRIN [Concomitant]
  7. DECADRON [Concomitant]
  8. PEPCID [Concomitant]
  9. DECADRON [Concomitant]
  10. DUONEB [Concomitant]

REACTIONS (4)
  - CHRONIC OBSTRUCTIVE AIRWAYS DISEASE EXACERBATED [None]
  - HYPOTENSION [None]
  - RESPIRATORY ARREST [None]
  - THERAPY NON-RESPONDER [None]
